FAERS Safety Report 10154528 (Version 2)
Quarter: 2014Q2

REPORT INFORMATION
  Report Type: Spontaneous
  Country: US (occurrence: US)
  Receive Date: 20140506
  Receipt Date: 20140509
  Transmission Date: 20141212
  Serious: No
  Sender: FDA-Public Use
  Company Number: US-PFIZER INC-2014120905

PATIENT
  Sex: Female

DRUGS (2)
  1. CALAN SR [Suspect]
     Dosage: 180 MG, UNK
  2. CALAN SR [Suspect]
     Dosage: 120 MG, UNK

REACTIONS (1)
  - Blood pressure inadequately controlled [Unknown]
